FAERS Safety Report 13129586 (Version 3)
Quarter: 2017Q2

REPORT INFORMATION
  Report Type: Report from Study
  Country: US (occurrence: US)
  Receive Date: 20170119
  Receipt Date: 20170425
  Transmission Date: 20170830
  Serious: Yes (Other)
  Sender: FDA-Public Use
  Company Number: US-AMGEN-USASP2017007344

PATIENT
  Sex: Female

DRUGS (11)
  1. ENBREL [Suspect]
     Active Substance: ETANERCEPT
     Dosage: 50 MG, QWK
     Route: 058
     Dates: start: 201609, end: 201612
  2. CELEBREX [Concomitant]
     Active Substance: CELECOXIB
  3. ATENOLOL. [Concomitant]
     Active Substance: ATENOLOL
  4. COMPAZINE [Concomitant]
     Active Substance: PROCHLORPERAZINE MALEATE
  5. ENBREL [Suspect]
     Active Substance: ETANERCEPT
     Indication: RHEUMATOID ARTHRITIS
     Dosage: 50 MG, QWK
     Route: 058
     Dates: start: 2009, end: 2015
  6. DOXEPIN [Concomitant]
     Active Substance: DOXEPIN
  7. WARFARIN [Concomitant]
     Active Substance: WARFARIN
  8. NEXIUM [Concomitant]
     Active Substance: ESOMEPRAZOLE MAGNESIUM
  9. DIAZEPAM. [Concomitant]
     Active Substance: DIAZEPAM
  10. LISINOPRIL. [Concomitant]
     Active Substance: LISINOPRIL
  11. VITROBION [Concomitant]

REACTIONS (4)
  - Rheumatoid arthritis [Not Recovered/Not Resolved]
  - Drug dose omission [Unknown]
  - Wrong technique in product usage process [Unknown]
  - Underdose [Unknown]

NARRATIVE: CASE EVENT DATE: 2015
